FAERS Safety Report 5773529-1 (Version None)
Quarter: 2008Q2

REPORT INFORMATION
  Report Type: 
  Country: None (occurrence: None)
  Receive Date: 20080616
  Receipt Date: 20080605
  Transmission Date: 20081010
  Serious: Yes (Other)
  Sender: FDA-Public Use
  Company Number: US-ROCHE-552261

PATIENT
  Sex: Female

DRUGS (7)
  1. PEG-INTERFERON A-2A (RO 25-8310) [Suspect]
     Route: 065
     Dates: start: 20080214, end: 20080515
  2. RIBAVIRIN [Suspect]
     Route: 065
     Dates: start: 20080214
  3. RIBAVIRIN [Suspect]
     Route: 065
     Dates: end: 20080515
  4. PRILOSEC [Concomitant]
  5. ADVAIR DISKUS 100/50 [Concomitant]
  6. ADVAIR DISKUS 100/50 [Concomitant]
  7. ALBUTEROL [Concomitant]

REACTIONS (13)
  - ABNORMAL FAECES [None]
  - ALOPECIA [None]
  - ANGER [None]
  - CHILLS [None]
  - DECREASED APPETITE [None]
  - DIARRHOEA HAEMORRHAGIC [None]
  - DYSPNOEA [None]
  - FATIGUE [None]
  - HEADACHE [None]
  - MUSCLE SPASMS [None]
  - OCULAR ICTERUS [None]
  - OESOPHAGEAL RUPTURE [None]
  - WEIGHT DECREASED [None]
